FAERS Safety Report 7820165 (Version 3)
Quarter: 2013Q3

REPORT INFORMATION
  Report Type: Spontaneous
  Country: US (occurrence: US)
  Receive Date: 20110221
  Receipt Date: 20130716
  Transmission Date: 20140515
  Serious: Yes (Other)
  Sender: FDA-Public Use
  Company Number: US-ROCHE-735781

PATIENT
  Sex: Female
  Weight: 72.6 kg

DRUGS (1)
  1. ACCUTANE [Suspect]
     Indication: ACNE
     Route: 065
     Dates: start: 198504, end: 198508

REACTIONS (6)
  - Colitis ulcerative [Unknown]
  - Gastrointestinal disorder [Unknown]
  - Depression [Unknown]
  - Diverticulum [Unknown]
  - Oral herpes [Unknown]
  - Irritable bowel syndrome [Unknown]
